FAERS Safety Report 9011696 (Version 1)
Quarter: 2013Q1

REPORT INFORMATION
  Report Type: Spontaneous
  Country: JP (occurrence: JP)
  Receive Date: 20130102
  Receipt Date: 20130102
  Transmission Date: 20140127
  Serious: Yes (Other)
  Sender: FDA-Public Use
  Company Number: PHHY2012JP121196

PATIENT
  Sex: Female

DRUGS (1)
  1. COMTAN [Suspect]
     Indication: PARKINSON^S DISEASE
     Route: 048

REACTIONS (9)
  - Road traffic accident [Unknown]
  - Gamma-glutamyltransferase increased [Unknown]
  - Red blood cell count increased [Unknown]
  - Chromaturia [Unknown]
  - Musculoskeletal stiffness [Unknown]
  - Neck pain [Unknown]
  - Joint stiffness [Unknown]
  - Somnolence [Unknown]
  - Dyskinesia [Unknown]
